FAERS Safety Report 7361001-7 (Version None)
Quarter: 2011Q1

REPORT INFORMATION
  Report Type: 
  Country: None (occurrence: None)
  Receive Date: 20110318
  Receipt Date: 20110310
  Transmission Date: 20110831
  Serious: Yes (Other)
  Sender: FDA-Public Use
  Company Number: JP-ROCHE-713710

PATIENT
  Sex: Female
  Weight: 46 kg

DRUGS (10)
  1. PROMAC [Concomitant]
     Route: 048
     Dates: start: 20100223, end: 20100315
  2. LORCAM [Concomitant]
     Route: 048
     Dates: start: 20100317, end: 20100427
  3. PYDOXAL [Concomitant]
     Route: 048
     Dates: start: 20100428, end: 20100528
  4. PL [Concomitant]
     Route: 048
     Dates: start: 20100519, end: 20100525
  5. HERCEPTIN [Suspect]
     Route: 041
     Dates: start: 20100317, end: 20100519
  6. SAIREI-TO [Concomitant]
     Route: 048
     Dates: start: 20100304, end: 20100301
  7. LASIX [Concomitant]
     Route: 048
     Dates: start: 20100304, end: 20100308
  8. KLARICID [Concomitant]
     Route: 048
     Dates: start: 20100519, end: 20100525
  9. HERCEPTIN [Suspect]
     Indication: BREAST CANCER
     Route: 041
     Dates: start: 20100223, end: 20100223
  10. MUCOSTA [Concomitant]
     Route: 048
     Dates: start: 20100317, end: 20100427

REACTIONS (2)
  - HYPOAESTHESIA [None]
  - LIVER DISORDER [None]
